FAERS Safety Report 5721498-2 (Version None)
Quarter: 2008Q2

REPORT INFORMATION
  Report Type: 
  Country: None (occurrence: None)
  Receive Date: 20080428
  Receipt Date: 20080428
  Transmission Date: 20081010
  Serious: Yes (Life-Threatening, Hospitalization, Disabling)
  Sender: FDA-Public Use
  Company Number: None

PATIENT
  Sex: Female
  Weight: 54.4316 kg

DRUGS (2)
  1. BONIVA [Suspect]
     Indication: OSTEOPENIA
     Dosage: 1 MONTHLY PO
     Route: 048
     Dates: start: 20070617, end: 20070617
  2. BONIVA [Suspect]
     Indication: OSTEOPENIA
     Dosage: 1 MONTHLY PO
     Route: 048
     Dates: start: 20070818, end: 20070818

REACTIONS (11)
  - AMNESIA [None]
  - ATRIAL FIBRILLATION [None]
  - BLOOD SODIUM DECREASED [None]
  - BRAIN OEDEMA [None]
  - CARDIAC DISORDER [None]
  - ENCEPHALOPATHY [None]
  - GENERAL PHYSICAL HEALTH DETERIORATION [None]
  - LARGE INTESTINAL ULCER HAEMORRHAGE [None]
  - MENTAL DISORDER [None]
  - THINKING ABNORMAL [None]
  - VOMITING PROJECTILE [None]
